FAERS Safety Report 19840858 (Version 1)
Quarter: 2021Q3

REPORT INFORMATION
  Report Type: Spontaneous
  Country: US (occurrence: US)
  Receive Date: 20210916
  Receipt Date: 20210916
  Transmission Date: 20211014
  Serious: No
  Sender: FDA-Public Use
  Company Number: US-PFIZER INC-202100957781

PATIENT
  Sex: Female

DRUGS (1)
  1. GABAPENTIN. [Suspect]
     Active Substance: GABAPENTIN
     Indication: RESPIRATORY TRACT INFECTION
     Dosage: UNK

REACTIONS (3)
  - Off label use [Unknown]
  - Hypoaesthesia [Unknown]
  - Feeling abnormal [Unknown]
